FAERS Safety Report 9322581 (Version 2)
Quarter: 2013Q4

REPORT INFORMATION
  Report Type: Spontaneous
  Country: US (occurrence: US)
  Receive Date: 20130531
  Receipt Date: 20131114
  Transmission Date: 20140711
  Serious: Yes (Death, Hospitalization)
  Sender: FDA-Public Use
  Company Number: US-B.I. PHARMACEUTICALS,INC./RIDGEFIELD-2013-BI-15158BP

PATIENT
  Age: 72 Year
  Sex: Female
  Weight: 158.76 kg

DRUGS (9)
  1. PRADAXA [Suspect]
     Indication: ANTICOAGULANT THERAPY
     Dates: start: 20110125, end: 20110901
  2. PRADAXA [Suspect]
     Indication: ATRIAL FIBRILLATION
     Dates: start: 20110923, end: 20111013
  3. HYDROXYZINE [Concomitant]
  4. LISINOPRIL [Concomitant]
  5. GABAPENTIN [Concomitant]
  6. CYANOCOBALAMIN [Concomitant]
  7. LASIX [Concomitant]
     Indication: CARDIAC FAILURE CONGESTIVE
     Dosage: 160 MG
  8. GLIMEPIRIDE [Concomitant]
  9. LEVOTHYROXINE [Concomitant]
     Indication: HYPOTHYROIDISM
     Dosage: 125 MCG

REACTIONS (10)
  - Gastrointestinal haemorrhage [Fatal]
  - Haemorrhagic anaemia [Fatal]
  - Acute respiratory failure [Fatal]
  - Renal failure acute [Fatal]
  - Depressed level of consciousness [Unknown]
  - Acute respiratory failure [Unknown]
  - Melaena [Unknown]
  - Renal failure acute [Unknown]
  - Leukocytosis [Unknown]
  - Urinary tract infection [Unknown]
